FAERS Safety Report 11593119 (Version 1)
Quarter: 2015Q4

REPORT INFORMATION
  Report Type: Report from Study
  Country: US (occurrence: US)
  Receive Date: 20151005
  Receipt Date: 20151005
  Transmission Date: 20160304
  Serious: Yes (Other)
  Sender: FDA-Public Use
  Company Number: US-ASTELLAS-2015US036144

PATIENT

DRUGS (3)
  1. ERLOTINIB [Suspect]
     Active Substance: ERLOTINIB
     Dosage: 150 MG, DL 2-5
     Route: 048
  2. ERLOTINIB [Suspect]
     Active Substance: ERLOTINIB
     Indication: NON-SMALL CELL LUNG CANCER
     Dosage: 100 MG, DL 1
     Route: 048
  3. INC280 [Suspect]
     Active Substance: INVESTIGATIONAL PRODUCT
     Indication: NON-SMALL CELL LUNG CANCER
     Dosage: INCREASED OVER 5 DOSE LEVELS (DL) FROM 100 - 600 MG (2 IN 1 DAY)
     Route: 048

REACTIONS (4)
  - Neutropenia [Unknown]
  - Lipase increased [Unknown]
  - Decreased appetite [Unknown]
  - Amylase increased [Unknown]
